FAERS Safety Report 5922864-2 (Version None)
Quarter: 2008Q4

REPORT INFORMATION
  Report Type: 
  Country: None (occurrence: None)
  Receive Date: 20081017
  Receipt Date: 20081013
  Transmission Date: 20090506
  Serious: Yes (Life-Threatening, Hospitalization)
  Sender: FDA-Public Use
  Company Number: PHHY2008FR24768

PATIENT
  Sex: Female

DRUGS (5)
  1. ZOMETA [Suspect]
     Indication: OSTEOPOROSIS
     Dosage: 4 MG, QMO
     Dates: start: 20080101, end: 20080616
  2. CINACALCET [Suspect]
     Dosage: 30 MG/DAY
     Dates: start: 20080626, end: 20080717
  3. VINCRISTINE [Concomitant]
     Dosage: UNK
     Dates: end: 20060701
  4. ADRIAMYCIN PFS [Concomitant]
     Dosage: UNK
     Dates: end: 20060701
  5. VELCADE [Concomitant]
     Dosage: UNK
     Dates: start: 20060901, end: 20071201

REACTIONS (3)
  - BLOOD PARATHYROID HORMONE INCREASED [None]
  - HYPOCALCAEMIA [None]
  - RENAL FAILURE ACUTE [None]
